FAERS Safety Report 10595954 (Version 2)
Quarter: 2014Q4

REPORT INFORMATION
  Report Type: Spontaneous
  Country: US (occurrence: US)
  Receive Date: 20141120
  Receipt Date: 20141223
  Transmission Date: 20150529
  Serious: No
  Sender: FDA-Public Use
  Company Number: US-PFIZER INC-2014316739

PATIENT
  Age: 9 Year
  Sex: Male
  Weight: 27.21 kg

DRUGS (1)
  1. QUILLIVANT XR [Suspect]
     Active Substance: METHYLPHENIDATE HYDROCHLORIDE
     Indication: ATTENTION DEFICIT/HYPERACTIVITY DISORDER
     Dosage: 4 ML, 1X/DAY
     Dates: start: 201312

REACTIONS (3)
  - Insomnia [Unknown]
  - Weight increased [Unknown]
  - Drug withdrawal syndrome [Unknown]

NARRATIVE: CASE EVENT DATE: 20141116
